FAERS Safety Report 4752173-9 (Version None)
Quarter: 2005Q3

REPORT INFORMATION
  Report Type: 
  Country: None (occurrence: None)
  Receive Date: 20050825
  Receipt Date: 20050812
  Transmission Date: 20060218
  Serious: Yes (Death)
  Sender: FDA-Public Use
  Company Number: JP-JNJFOC-20050803946

PATIENT
  Sex: Male

DRUGS (32)
  1. FENTANYL [Suspect]
     Indication: CANCER PAIN
     Route: 062
  2. DUROTEP [Suspect]
     Indication: CANCER PAIN
     Route: 062
  3. HUMAN INSULIN (GENETICAL RECOMBINATION) [Concomitant]
     Dosage: 8 DOSAGE FORM/DAY
     Route: 058
  4. HUMAN INSULIN (GENETICAL RECOMBINATION) [Concomitant]
     Dosage: 6 DOSAGE FORM/DAY
     Route: 058
  5. HUMAN INSULIN (GENETICAL RECOMBINATION) [Concomitant]
     Dosage: 10 DOSAGE FORM/DAY
     Route: 058
  6. HUMAN INSULIN (GENETICAL RECOMBINATION) [Concomitant]
     Dosage: 8 DOSAGE FORM/DAY
     Route: 058
  7. HUMAN INSULIN (GENETICAL RECOMBINATION) [Concomitant]
     Dosage: 4 DOSAGE FORM/DAY
     Route: 058
  8. HUMAN INSULIN (GENETICAL RECOMBINATION) [Concomitant]
     Dosage: 8 DOSAGE FORM/DAY
     Route: 058
  9. HUMAN INSULIN (GENETICAL RECOMBINATION) [Concomitant]
     Dosage: 14 DOSAGE FORM/DAY
     Route: 058
  10. HUMAN INSULIN (GENETICAL RECOMBINATION) [Concomitant]
     Dosage: 4 DOSAGE FORM/DAY
     Route: 058
  11. PREDNISOLONE [Concomitant]
     Route: 048
  12. PREDNISOLONE [Concomitant]
     Route: 048
  13. PREDNISOLONE [Concomitant]
     Indication: ANALGESIC EFFECT
     Route: 048
  14. METHYLPHENIDATE HCL [Concomitant]
     Indication: SOMNOLENCE
     Route: 048
  15. PROCHLORPERAZINE MALEATE [Concomitant]
     Route: 048
  16. PROCHLORPERAZINE MALEATE [Concomitant]
     Route: 048
  17. MAINTENANCE MEDIUM [Concomitant]
     Route: 041
  18. MAINTENANCE MEDIUM [Concomitant]
     Route: 041
  19. MAINTENANCE MEDIUM [Concomitant]
     Indication: FLUID REPLACEMENT
     Route: 041
  20. FLURBIPROFEN AXETIL [Concomitant]
     Indication: ANALGESIC EFFECT
     Dosage: 2 DOSAGE FORM/DAY
     Route: 041
  21. KETAMINE HCL [Concomitant]
     Indication: ANALGESIC EFFECT
     Route: 041
  22. DROPERIDOL [Concomitant]
     Route: 041
  23. LIDOCAINE [Concomitant]
     Indication: ANALGESIC EFFECT
     Dosage: 2 DOSAGE FORM/DAY
     Route: 041
  24. LOXOPROFEN SODIUM [Concomitant]
     Indication: CANCER PAIN
     Route: 048
  25. RABEPRAZOLE SODIUM [Concomitant]
     Indication: PROPHYLAXIS AGAINST GASTROINTESTINAL ULCER
     Route: 048
  26. BROTIZOLAM [Concomitant]
     Indication: INSOMNIA
     Route: 048
  27. SUCROSE [Concomitant]
     Route: 061
  28. POVIDONE IODINE [Concomitant]
     Route: 061
  29. PROCTOSEDYL [Concomitant]
     Route: 054
  30. PROCTOSEDYL [Concomitant]
     Route: 054
  31. PROCTOSEDYL [Concomitant]
     Route: 054
  32. PROCTOSEDYL [Concomitant]
     Dosage: 1 DOSAGE FORM/DAY
     Route: 054

REACTIONS (8)
  - BLOOD GLUCOSE INCREASED [None]
  - CELLULITIS [None]
  - CYANOSIS [None]
  - DECUBITUS ULCER [None]
  - DEPRESSION [None]
  - PULSE ABSENT [None]
  - RESPIRATORY ARREST [None]
  - SOMNOLENCE [None]
